FAERS Safety Report 14142442 (Version 1)
Quarter: 2017Q4

REPORT INFORMATION
  Report Type: Spontaneous
  Country: US (occurrence: US)
  Receive Date: 20171030
  Receipt Date: 20171030
  Transmission Date: 20180321
  Serious: No
  Sender: FDA-Public Use
  Company Number: US-009507513-1710USA002225

PATIENT
  Age: 23 Year
  Sex: Female

DRUGS (1)
  1. NEXPLANON [Suspect]
     Active Substance: ETONOGESTREL
     Dosage: 1 IMPLANT (68 MG), FOR THREE YEARS
     Route: 059
     Dates: start: 20171002

REACTIONS (2)
  - Implant site bruising [Unknown]
  - Device breakage [Unknown]

NARRATIVE: CASE EVENT DATE: 201710
